FAERS Safety Report 7939259-2 (Version None)
Quarter: 2011Q4

REPORT INFORMATION
  Report Type: 
  Country: None (occurrence: None)
  Receive Date: 20111124
  Receipt Date: 20111116
  Transmission Date: 20120403
  Serious: Yes (Other)
  Sender: FDA-Public Use
  Company Number: US-AMGEN-KDL370098

PATIENT
  Sex: Male
  Weight: 3.175 kg

DRUGS (2)
  1. ENBREL [Suspect]
     Dosage: 50 MG, 2 TIMES/WK
     Route: 058
  2. ENBREL [Suspect]
     Dosage: 25 MG, 2 TIMES/WK

REACTIONS (1)
  - PREMATURE LABOUR [None]
